FAERS Safety Report 5951507-7 (Version None)
Quarter: 2008Q4

REPORT INFORMATION
  Report Type: 
  Country: None (occurrence: None)
  Receive Date: 20081113
  Receipt Date: 20081103
  Transmission Date: 20090506
  Serious: Yes (Hospitalization, Other)
  Sender: FDA-Public Use
  Company Number: US-JNJFOC-20081006842

PATIENT
  Sex: Female

DRUGS (10)
  1. REMICADE [Suspect]
     Dosage: TOTAL OF 24 INFUSIONS WERE ADMINISTERED
     Route: 042
  2. REMICADE [Suspect]
     Route: 042
  3. REMICADE [Suspect]
     Indication: RHEUMATOID ARTHRITIS
     Route: 042
  4. FOSAMAX [Suspect]
     Indication: OSTEOPOROSIS
  5. METHOTREXATE [Concomitant]
     Route: 048
  6. METHOTREXATE [Concomitant]
     Route: 048
  7. METHOTREXATE [Concomitant]
     Route: 030
  8. GABAPENTIN [Concomitant]
  9. VICODIN [Concomitant]
  10. FOLIC ACID [Concomitant]

REACTIONS (7)
  - ALOPECIA [None]
  - ASCITES [None]
  - BACK PAIN [None]
  - DYSURIA [None]
  - SLEEP DISORDER [None]
  - TACHYARRHYTHMIA [None]
  - TUBERCULOSIS [None]
